FAERS Safety Report 18883912 (Version 1)
Quarter: 2021Q1

REPORT INFORMATION
  Report Type: Spontaneous
  Country: AU (occurrence: AU)
  Receive Date: 20210211
  Receipt Date: 20210211
  Transmission Date: 20210420
  Serious: Yes (Disabling, Other)
  Sender: FDA-Public Use
  Company Number: AU-FRESENIUS KABI-FK202101420

PATIENT
  Age: 33 Year
  Sex: Female

DRUGS (1)
  1. CAFFEINE CITRATE (MANUFACTURER UNKNOWN) (CAFFEINE CITRATE) (CAFFEINE CITRATE) [Suspect]
     Active Substance: CAFFEINE CITRATE
     Indication: POST LUMBAR PUNCTURE SYNDROME
     Route: 048

REACTIONS (3)
  - Generalised tonic-clonic seizure [Recovered/Resolved with Sequelae]
  - Ischaemic cerebral infarction [Recovered/Resolved with Sequelae]
  - Posterior reversible encephalopathy syndrome [Recovered/Resolved with Sequelae]
